FAERS Safety Report 5374127-4 (Version None)
Quarter: 2007Q2

REPORT INFORMATION
  Report Type: 
  Country: None (occurrence: None)
  Receive Date: 20070627
  Receipt Date: 20070619
  Transmission Date: 20071010
  Serious: Yes (Death, Life-Threatening, Hospitalization)
  Sender: FDA-Public Use
  Company Number: 2006P1000310

PATIENT
  Age: 78 Year
  Sex: Male
  Weight: 80 kg

DRUGS (25)
  1. RETEPLASE (RETEPLASE) [Suspect]
     Indication: ACUTE MYOCARDIAL INFARCTION
     Dosage: ; IV
     Route: 042
     Dates: start: 20060508
  2. ABCIXIMAB (ABCIXIMAB) [Suspect]
     Indication: ACUTE MYOCARDIAL INFARCTION
     Dosage: ; IV
     Route: 042
     Dates: start: 20060508
  3. NITROGLYCERIN [Concomitant]
  4. NITROGLYCERIN [Concomitant]
  5. DOPAMINE HCL [Concomitant]
  6. HEPARIN [Concomitant]
  7. HEPARIN [Concomitant]
  8. VASOCARDIN [Concomitant]
  9. ASPIRIN [Concomitant]
  10. FENTANYL [Concomitant]
  11. RANITIDINE [Concomitant]
  12. ISOKET [Concomitant]
  13. INSULIN [Concomitant]
  14. ASPARTATE POTASSIUM [Concomitant]
  15. MAGNESIUM ASPARTATE [Concomitant]
  16. METHYLPREDNISOLONE [Concomitant]
  17. EPHEDRINE [Concomitant]
  18. FUROSEMIDE [Concomitant]
  19. ESOMEPRAZOLE MAGNESIUM [Concomitant]
  20. CEFUROXIME [Concomitant]
  21. PANCURONIUM BROMIDE [Concomitant]
  22. ISOSORBIDE DINITRATE [Concomitant]
  23. ASPIRIN [Concomitant]
  24. METOPROLOL TARTRATE [Concomitant]
  25. GLYCERYL TRINITRATE [Concomitant]

REACTIONS (34)
  - ACTIVATED PARTIAL THROMBOPLASTIN TIME PROLONGED [None]
  - ACUTE RESPIRATORY DISTRESS SYNDROME [None]
  - ALANINE AMINOTRANSFERASE INCREASED [None]
  - ARRHYTHMIA [None]
  - ARTERIAL HAEMORRHAGE [None]
  - ASPARTATE AMINOTRANSFERASE INCREASED [None]
  - BILIRUBIN CONJUGATED INCREASED [None]
  - BLOOD BILIRUBIN INCREASED [None]
  - BLOOD UREA INCREASED [None]
  - BRADYCARDIA [None]
  - CARDIAC ARREST [None]
  - CARDIAC FAILURE [None]
  - CEREBRAL ATROPHY [None]
  - CEREBRAL ISCHAEMIA [None]
  - CHEST PAIN [None]
  - CONTINUOUS HAEMODIAFILTRATION [None]
  - CORONARY ARTERY STENOSIS [None]
  - ENCEPHALOPATHY [None]
  - GASTRITIS EROSIVE [None]
  - GASTRODUODENITIS [None]
  - HYPERTHERMIA [None]
  - HYPOTENSION [None]
  - MICTURITION FREQUENCY DECREASED [None]
  - NEUROLOGICAL SYMPTOM [None]
  - PCO2 DECREASED [None]
  - PERICARDIAL HAEMORRHAGE [None]
  - PO2 DECREASED [None]
  - PULMONARY FUNCTION TEST DECREASED [None]
  - PYREXIA [None]
  - REFLUX OESOPHAGITIS [None]
  - RESPIRATORY FAILURE [None]
  - TACHYCARDIA [None]
  - VARICES OESOPHAGEAL [None]
  - VENTRICULAR FIBRILLATION [None]
